FAERS Safety Report 8542025-0 (Version None)
Quarter: 2012Q3

REPORT INFORMATION
  Report Type: 
  Country: None (occurrence: None)
  Receive Date: 20120726
  Receipt Date: 20111004
  Transmission Date: 20120928
  Serious: No
  Sender: FDA-Public Use
  Company Number: US-ASTRAZENECA-2011SE59700

PATIENT
  Age: 46 Year
  Sex: Female
  Weight: 81.6 kg

DRUGS (12)
  1. PROZAC [Concomitant]
  2. SEROQUEL [Suspect]
     Route: 048
  3. RELPAX [Concomitant]
     Indication: MIGRAINE
  4. SEROQUEL [Suspect]
     Indication: BIPOLAR DISORDER
     Route: 048
  5. ALLEGRA [Concomitant]
  6. ALESSE [Concomitant]
  7. MUCINEX [Concomitant]
     Dosage: AS NEEDED
  8. PLUTONICS [Concomitant]
  9. CLONEZEPAM [Concomitant]
  10. LAMICTAL [Concomitant]
  11. SINGULAIR [Concomitant]
     Indication: ASTHMA
  12. ADVIL [Concomitant]
     Indication: NECK PAIN
     Dosage: AS NEEDED

REACTIONS (5)
  - DIABETES MELLITUS [None]
  - NERVOUSNESS [None]
  - SOMNOLENCE [None]
  - DECREASED APPETITE [None]
  - CONSTIPATION [None]
